FAERS Safety Report 18408496 (Version 1)
Quarter: 2020Q4

REPORT INFORMATION
  Report Type: Spontaneous
  Country: QA (occurrence: QA)
  Receive Date: 20201021
  Receipt Date: 20201021
  Transmission Date: 20210114
  Serious: Yes (Other)
  Sender: FDA-Public Use
  Company Number: QA-SUN PHARMACEUTICAL INDUSTRIES LTD-2020R1-264607

PATIENT
  Age: 33 Year
  Sex: Male

DRUGS (2)
  1. CALCITRIOL. [Suspect]
     Active Substance: CALCITRIOL
     Indication: HYPOCALCAEMIA
     Dosage: 1 MCG, DAILY
     Route: 065
  2. CALCIUM CARBONATE. [Suspect]
     Active Substance: CALCIUM CARBONATE
     Indication: HYPOCALCAEMIA
     Dosage: 1250 MILLIGRAM,THREE TABLETS, TID
     Route: 065

REACTIONS (1)
  - Epicondylitis [Recovering/Resolving]
